FAERS Safety Report 10194683 (Version 2)
Quarter: 2014Q3

REPORT INFORMATION
  Report Type: Report from Study
  Country: FR (occurrence: FR)
  Receive Date: 20140526
  Receipt Date: 20140714
  Transmission Date: 20150326
  Serious: Yes (Death)
  Sender: FDA-Public Use
  Company Number: FR-PFIZER INC-2014138644

PATIENT
  Age: 2 Year
  Sex: Male
  Weight: 10 kg

DRUGS (1)
  1. CRIZOTINIB [Suspect]
     Active Substance: CRIZOTINIB
     Indication: NEUROBLASTOMA RECURRENT
     Dosage: 250 MG, DAILY
     Route: 048
     Dates: start: 20121130, end: 20121211

REACTIONS (2)
  - Disease progression [Fatal]
  - Neuroblastoma [Fatal]

NARRATIVE: CASE EVENT DATE: 20121220
